FAERS Safety Report 10012188 (Version 4)
Quarter: 2014Q2

REPORT INFORMATION
  Report Type: Spontaneous
  Country: FR (occurrence: FR)
  Receive Date: 20140314
  Receipt Date: 20140617
  Transmission Date: 20141212
  Serious: Yes (Other)
  Sender: FDA-Public Use
  Company Number: FR-GLAXOSMITHKLINE-B0976731A

PATIENT
  Age: 49 Year
  Sex: Male

DRUGS (7)
  1. ALKERAN [Suspect]
     Indication: BONE MARROW TRANSPLANT
     Dosage: 400MG PER DAY
     Route: 042
     Dates: start: 20080901, end: 20120203
  2. REVLIMID [Suspect]
     Indication: PLASMA CELL MYELOMA
     Route: 048
     Dates: start: 201108, end: 20140208
  3. VELCADE [Suspect]
     Indication: PLASMA CELL MYELOMA
     Route: 058
     Dates: start: 2008, end: 20131028
  4. DEXAMETHASONE [Suspect]
     Indication: PLASMA CELL MYELOMA
     Dosage: 80MG PER DAY
     Route: 042
     Dates: start: 2008, end: 201305
  5. ENDOXAN [Suspect]
     Indication: PLASMA CELL MYELOMA RECURRENT
     Route: 065
     Dates: start: 2011, end: 20131118
  6. PAMIDRONIC ACID [Concomitant]
     Indication: PLASMA CELL MYELOMA
     Route: 042
     Dates: start: 20130610, end: 20131028
  7. SKENAN [Concomitant]
     Indication: BONE PAIN

REACTIONS (2)
  - Rectal adenocarcinoma [Not Recovered/Not Resolved]
  - Drug interaction [Unknown]
